FAERS Safety Report 7182860-7 (Version None)
Quarter: 2010Q4

REPORT INFORMATION
  Report Type: 
  Country: None (occurrence: None)
  Receive Date: 20101222
  Receipt Date: 20101214
  Transmission Date: 20110411
  Serious: Yes (Hospitalization)
  Sender: FDA-Public Use
  Company Number: DE-BIOGENIDEC-2010BI043607

PATIENT
  Age: 54 Year
  Sex: Female
  Weight: 51 kg

DRUGS (1)
  1. AVONEX [Suspect]
     Indication: RELAPSING-REMITTING MULTIPLE SCLEROSIS
     Route: 030
     Dates: start: 19980101, end: 20101109

REACTIONS (12)
  - DECREASED APPETITE [None]
  - EYE IRRITATION [None]
  - GLAUCOMA [None]
  - INFLUENZA [None]
  - INJECTION SITE INDURATION [None]
  - INJECTION SITE PAIN [None]
  - LIVER FUNCTION TEST ABNORMAL [None]
  - NAUSEA [None]
  - RENAL FUNCTION TEST ABNORMAL [None]
  - RETINAL DETACHMENT [None]
  - VITREOUS DETACHMENT [None]
  - WEIGHT DECREASED [None]
